FAERS Safety Report 25752486 (Version 5)
Quarter: 2025Q4

REPORT INFORMATION
  Report Type: Report from Study
  Country: EU (occurrence: EU)
  Receive Date: 20250902
  Receipt Date: 20251212
  Transmission Date: 20260118
  Serious: Yes (Other)
  Sender: SYNDAX
  Company Number: EU-SYNDAX PHARMACEUTICALS, INC.-2025FR000648

PATIENT
  Age: 74 Year
  Sex: Female
  Weight: 42 kg

DRUGS (5)
  1. REVUMENIB SESQUIFUMARATE [Suspect]
     Active Substance: REVUMENIB SESQUIFUMARATE
     Indication: Acute leukaemia
     Dosage: 270 MILLIGRAM, BID
     Route: 048
     Dates: start: 20250716, end: 20250717
  2. REVUMENIB SESQUIFUMARATE [Suspect]
     Active Substance: REVUMENIB SESQUIFUMARATE
     Dosage: 160 MILLIGRAM, BID
     Route: 048
     Dates: start: 20250718
  3. REVUMENIB SESQUIFUMARATE [Suspect]
     Active Substance: REVUMENIB SESQUIFUMARATE
     Dosage: 110 MILLIGRAM, BID
     Route: 048
     Dates: start: 20250725
  4. REVUMENIB SESQUIFUMARATE [Suspect]
     Active Substance: REVUMENIB SESQUIFUMARATE
     Dosage: 110 MILLIGRAM, DAILY
     Route: 048
     Dates: start: 20250808
  5. REVUMENIB SESQUIFUMARATE [Suspect]
     Active Substance: REVUMENIB SESQUIFUMARATE
     Dosage: 110 MILLIGRAM, QOD
     Route: 048
     Dates: start: 20250814, end: 20250821

REACTIONS (5)
  - Thrombocytopenia [Recovered/Resolved]
  - Neutropenia [Recovered/Resolved]
  - Ataxia [Recovered/Resolved]
  - Electrocardiogram QT prolonged [Recovered/Resolved]
  - Nausea [Recovered/Resolved]

NARRATIVE: CASE EVENT DATE: 20250718
